FAERS Safety Report 7543333-2 (Version None)
Quarter: 2011Q2

REPORT INFORMATION
  Report Type: 
  Country: None (occurrence: None)
  Receive Date: 20110524
  Receipt Date: 20110301
  Transmission Date: 20111010
  Serious: No
  Sender: FDA-Public Use
  Company Number: 022057

PATIENT
  Sex: Male

DRUGS (2)
  1. CIMZIA [Suspect]
     Indication: CROHN'S DISEASE
     Dosage: SUBCUTANEOUS
     Route: 058
     Dates: start: 20101015
  2. NYSTATIN [Suspect]
     Dates: start: 20101101

REACTIONS (7)
  - PHARYNGITIS [None]
  - RASH PAPULAR [None]
  - ADVERSE EVENT [None]
  - THERAPEUTIC RESPONSE DECREASED [None]
  - ASTHENIA [None]
  - FATIGUE [None]
  - CROHN'S DISEASE [None]
